FAERS Safety Report 4543149-5 (Version None)
Quarter: 2004Q4

REPORT INFORMATION
  Report Type: 
  Country: None (occurrence: None)
  Receive Date: 20041229
  Receipt Date: 20041216
  Transmission Date: 20050328
  Serious: Yes (Other)
  Sender: FDA-Public Use
  Company Number: 2004209708GB

PATIENT
  Sex: Female
  Weight: 68.9921 kg

DRUGS (2)
  1. CYTOTEC [Suspect]
     Indication: ABORTION INDUCED
     Dosage: 800 MCG (1 IN 1 TOTAL), VAGINAL
     Route: 067
     Dates: start: 20031009, end: 20031009
  2. MIFEPRISTONE (MIFEPRISTONE) [Suspect]
     Indication: ABORTION INDUCED
     Dosage: 200 MG (1 IN 1 TOTAL)
     Dates: start: 20031007, end: 20031007

REACTIONS (6)
  - CAESAREAN SECTION [None]
  - CHORIOAMNIONITIS [None]
  - DRUG EXPOSURE DURING PREGNANCY [None]
  - INDUCED ABORTION FAILED [None]
  - PREGNANCY [None]
  - PREMATURE LABOUR [None]
